FAERS Safety Report 12481806 (Version 6)
Quarter: 2017Q1

REPORT INFORMATION
  Report Type: Report from Study
  Country: CA (occurrence: CA)
  Receive Date: 20160620
  Receipt Date: 20170201
  Transmission Date: 20170428
  Serious: Yes (Other)
  Sender: FDA-Public Use
  Company Number: CA-BRISTOL-MYERS SQUIBB COMPANY-BMS-2016-047614

PATIENT
  Age: 20 Year
  Sex: Female

DRUGS (1)
  1. ABATACEPT [Suspect]
     Active Substance: ABATACEPT
     Indication: RHEUMATOID ARTHRITIS
     Dosage: 1000 MG, Q4WK
     Route: 042
     Dates: start: 20150901

REACTIONS (5)
  - Cyst removal [Unknown]
  - Menstruation irregular [Unknown]
  - Lung infection [Unknown]
  - Cyst [Unknown]
  - Joint stiffness [Unknown]

NARRATIVE: CASE EVENT DATE: 201609
